FAERS Safety Report 5211722-7 (Version None)
Quarter: 2007Q1

REPORT INFORMATION
  Report Type: 
  Country: None (occurrence: None)
  Receive Date: 20070118
  Receipt Date: 20070108
  Transmission Date: 20070707
  Serious: Yes (Other)
  Sender: FDA-Public Use
  Company Number: PHNU2007DE00496

PATIENT
  Sex: Female

DRUGS (3)
  1. FEMARA [Suspect]
     Indication: BREAST CANCER FEMALE
     Dosage: 2.5 MG, QD
     Route: 048
     Dates: start: 20060101
  2. METFORMIN [Concomitant]
     Route: 065
  3. BETA BLOCKING AGENTS [Concomitant]
     Route: 065

REACTIONS (1)
  - DIABETES MELLITUS NON-INSULIN-DEPENDENT [None]
